FAERS Safety Report 6023234-1 (Version None)
Quarter: 2008Q4

REPORT INFORMATION
  Report Type: 
  Country: None (occurrence: None)
  Receive Date: 20081223
  Receipt Date: 20081211
  Transmission Date: 20090506
  Serious: Yes (Life-Threatening, Hospitalization, Disabling, Other)
  Sender: FDA-Public Use
  Company Number: POMP-11264

PATIENT
  Age: 2 Year
  Sex: Male
  Weight: 12 kg

DRUGS (4)
  1. MYOZYME [Suspect]
     Indication: GLYCOGEN STORAGE DISEASE TYPE II
     Dosage: 20 MG/KG, Q2W, INTRAVENOUS
     Route: 042
     Dates: start: 20060531
  2. CORTICOSTEROIDS [Concomitant]
  3. PHENERGAN HCL [Concomitant]
  4. HYDROCORTISONE (SALICYLIC ACID) [Concomitant]

REACTIONS (22)
  - ACUTE RESPIRATORY FAILURE [None]
  - CARDIAC HYPERTROPHY [None]
  - CARDIOMYOPATHY [None]
  - CENTRAL LINE INFECTION [None]
  - COUGH [None]
  - CYANOSIS [None]
  - DEAFNESS NEUROSENSORY [None]
  - DISEASE PROGRESSION [None]
  - ELECTROMYOGRAM ABNORMAL [None]
  - FEELING COLD [None]
  - HYPERTROPHIC CARDIOMYOPATHY [None]
  - HYPOTENSION [None]
  - HYPOTONIA [None]
  - INFUSION RELATED REACTION [None]
  - NO THERAPEUTIC RESPONSE [None]
  - PNEUMONIA [None]
  - PYREXIA [None]
  - RASH [None]
  - RESPIRATORY FAILURE [None]
  - RESPIRATORY SYNCYTIAL VIRUS INFECTION [None]
  - SHOCK [None]
  - TACHYPNOEA [None]
